FAERS Safety Report 4713428-7 (Version None)
Quarter: 2005Q3

REPORT INFORMATION
  Report Type: 
  Country: None (occurrence: None)
  Receive Date: 20050713
  Receipt Date: 20050704
  Transmission Date: 20060218
  Serious: Yes (Life-Threatening, Hospitalization, Disabling)
  Sender: FDA-Public Use
  Company Number: FR-ROCHE-409515

PATIENT
  Age: 61 Year
  Sex: Male

DRUGS (7)
  1. DACLIZUMAB [Suspect]
     Route: 042
     Dates: start: 20040522, end: 20040522
  2. DACLIZUMAB [Suspect]
     Route: 042
     Dates: start: 20040601, end: 20040601
  3. MYCOPHENOLATE MOFETIL [Suspect]
     Route: 048
     Dates: start: 20040522, end: 20040601
  4. MYCOPHENOLATE MOFETIL [Suspect]
     Route: 048
     Dates: start: 20040602, end: 20040618
  5. TACROLIMUS [Suspect]
     Route: 048
     Dates: start: 20040522
  6. TACROLIMUS [Suspect]
     Route: 048
     Dates: start: 20040527
  7. METHYLPREDNISOLONE 16MG TAB [Concomitant]
     Dates: start: 20040522

REACTIONS (3)
  - ABDOMINAL ABSCESS [None]
  - HEPATIC ARTERY ANEURYSM [None]
  - HEPATIC ARTERY STENOSIS [None]
